FAERS Safety Report 16125990 (Version 7)
Quarter: 2025Q3

REPORT INFORMATION
  Report Type: Report from Study
  Country: EU (occurrence: EU)
  Receive Date: 20190328
  Receipt Date: 20250723
  Transmission Date: 20251021
  Serious: Yes (Hospitalization, Other)
  Sender: ROCHE
  Company Number: EU-ROCHE-2214255

PATIENT
  Age: 63 Year
  Sex: Female

DRUGS (40)
  1. OCREVUS [Suspect]
     Active Substance: OCRELIZUMAB
     Indication: Secondary progressive multiple sclerosis
     Route: 042
     Dates: start: 20181106
  2. OCREVUS [Suspect]
     Active Substance: OCRELIZUMAB
     Route: 042
     Dates: start: 20181120
  3. OCREVUS [Suspect]
     Active Substance: OCRELIZUMAB
     Route: 042
     Dates: start: 20190521
  4. TOCILIZUMAB [Suspect]
     Active Substance: TOCILIZUMAB
     Indication: Giant cell arteritis
     Dosage: LAST DOSE ON DEC/2024, FREQUENCY EVERY IN 28 DAYS
     Route: 058
  5. TOCILIZUMAB [Suspect]
     Active Substance: TOCILIZUMAB
     Route: 058
  6. TOCILIZUMAB [Suspect]
     Active Substance: TOCILIZUMAB
     Route: 058
  7. TOCILIZUMAB [Suspect]
     Active Substance: TOCILIZUMAB
     Route: 058
  8. TOCILIZUMAB [Suspect]
     Active Substance: TOCILIZUMAB
     Dosage: LAST DOSE ON DEC/2024, FREQUENCY EVERY IN 28 DAYS
     Route: 058
  9. TOCILIZUMAB [Suspect]
     Active Substance: TOCILIZUMAB
     Route: 058
  10. TOCILIZUMAB [Suspect]
     Active Substance: TOCILIZUMAB
     Route: 058
  11. TOCILIZUMAB [Suspect]
     Active Substance: TOCILIZUMAB
     Route: 058
  12. TOCILIZUMAB [Suspect]
     Active Substance: TOCILIZUMAB
     Route: 058
  13. TOCILIZUMAB [Suspect]
     Active Substance: TOCILIZUMAB
     Route: 058
  14. CORTISONE [Suspect]
     Active Substance: CORTISONE
     Indication: Product used for unknown indication
     Route: 048
  15. CORTISONE [Suspect]
     Active Substance: CORTISONE
     Route: 065
  16. CORTISONE [Suspect]
     Active Substance: CORTISONE
     Route: 048
  17. CORTISONE [Suspect]
     Active Substance: CORTISONE
     Route: 065
  18. CORTISONE [Suspect]
     Active Substance: CORTISONE
     Route: 065
  19. CORTISONE [Suspect]
     Active Substance: CORTISONE
     Route: 065
  20. HYDROCHLOROTHIAZIDE\RAMIPRIL [Concomitant]
     Active Substance: HYDROCHLOROTHIAZIDE\RAMIPRIL
     Dosage: 5/12.5 MG
  21. HYDROCHLOROTHIAZIDE\RAMIPRIL [Concomitant]
     Active Substance: HYDROCHLOROTHIAZIDE\RAMIPRIL
     Dosage: 5/12.5 MG
  22. CARBAMAZEPINE [Concomitant]
     Active Substance: CARBAMAZEPINE
  23. CARBAMAZEPINE [Concomitant]
     Active Substance: CARBAMAZEPINE
  24. SPASMEX (GERMANY) [Concomitant]
  25. SPASMEX (GERMANY) [Concomitant]
  26. BACLOFEN [Concomitant]
     Active Substance: BACLOFEN
  27. BACLOFEN [Concomitant]
     Active Substance: BACLOFEN
  28. LEVOTHYROXINE SODIUM [Concomitant]
     Active Substance: LEVOTHYROXINE SODIUM
  29. LEVOTHYROXINE SODIUM [Concomitant]
     Active Substance: LEVOTHYROXINE SODIUM
  30. ALENDRONIC ACID [Concomitant]
     Active Substance: ALENDRONIC ACID
  31. ALENDRONIC ACID [Concomitant]
     Active Substance: ALENDRONIC ACID
  32. NABIXIMOLS [Concomitant]
     Active Substance: NABIXIMOLS
  33. NABIXIMOLS [Concomitant]
     Active Substance: NABIXIMOLS
  34. NABIXIMOLS [Concomitant]
     Active Substance: NABIXIMOLS
  35. NABIXIMOLS [Concomitant]
     Active Substance: NABIXIMOLS
  36. CALCIUM [Concomitant]
     Active Substance: CALCIUM
  37. CALCIUM [Concomitant]
     Active Substance: CALCIUM
  38. PANTOPRAZOLE [Concomitant]
     Active Substance: PANTOPRAZOLE
  39. PANTOPRAZOLE [Concomitant]
     Active Substance: PANTOPRAZOLE
  40. PROLIA [Concomitant]
     Active Substance: DENOSUMAB
     Dosage: DOSE UNKNOWN

REACTIONS (29)
  - Initial insomnia [Recovered/Resolved]
  - Middle insomnia [Recovered/Resolved]
  - Headache [Recovered/Resolved]
  - Off label use [Unknown]
  - Nasopharyngitis [Recovered/Resolved]
  - Multiple sclerosis [Recovered/Resolved]
  - Multiple sclerosis [Recovered/Resolved]
  - Malaise [Recovered/Resolved]
  - Gait disturbance [Not Recovered/Not Resolved]
  - Foot fracture [Recovered/Resolved]
  - Fall [Unknown]
  - C-reactive protein increased [Recovered/Resolved]
  - Giant cell arteritis [Recovered/Resolved]
  - Musculoskeletal stiffness [Recovered/Resolved]
  - Oedema [Recovered/Resolved]
  - Asthenia [Not Recovered/Not Resolved]
  - Depressed mood [Recovered/Resolved]
  - Contusion [Recovering/Resolving]
  - Haematoma [Recovering/Resolving]
  - Pain [Recovered/Resolved]
  - Muscle spasticity [Not Recovered/Not Resolved]
  - Cataract [Recovered/Resolved]
  - Ankle fracture [Recovered/Resolved]
  - Ligament sprain [Recovered/Resolved]
  - Fracture delayed union [Recovered/Resolved]
  - Osteoporosis [Recovered/Resolved]
  - Muscular weakness [Not Recovered/Not Resolved]
  - COVID-19 [Recovered/Resolved]
  - Neuralgia [Recovered/Resolved]

NARRATIVE: CASE EVENT DATE: 20181106
